FAERS Safety Report 6284176-X (Version None)
Quarter: 2009Q3

REPORT INFORMATION
  Report Type: 
  Country: None (occurrence: None)
  Receive Date: 20090727
  Receipt Date: 20090720
  Transmission Date: 20100115
  Serious: No
  Sender: FDA-Public Use
  Company Number: CA-JNJFOC-20090706569

PATIENT

DRUGS (1)
  1. DURAGESIC MAT [Suspect]
     Indication: DRUG USE FOR UNKNOWN INDICATION
     Route: 062

REACTIONS (1)
  - DRUG ADMINISTRATION ERROR [None]
